FAERS Safety Report 23722537 (Version 1)
Quarter: 2024Q2

REPORT INFORMATION
  Report Type: Spontaneous
  Country: US (occurrence: US)
  Receive Date: 20240409
  Receipt Date: 20240409
  Transmission Date: 20240716
  Serious: Yes (Death, Life-Threatening)
  Sender: FDA-Public Use
  Company Number: US-CHEPLA-2024004271

PATIENT
  Sex: Female

DRUGS (19)
  1. GANCICLOVIR [Suspect]
     Active Substance: GANCICLOVIR
     Indication: Cytomegalovirus viraemia
     Dosage: INTRODUCED ON DAY +22 AFTER BONE MARROW TRANSPLANT.
  2. GANCICLOVIR [Suspect]
     Active Substance: GANCICLOVIR
     Indication: Cytomegalovirus viraemia
     Dosage: CMV VIREMIA WAS DETECTED AT 1 MONTH OF AGE, AND TREATED WITH GANCICLOVIR AND CYTOGAM, FOLLOWED BY...
  3. GANCICLOVIR [Suspect]
     Active Substance: GANCICLOVIR
     Indication: Cytomegalovirus viraemia
     Dosage: DUE TO PERSISTENT CMV VIREMIA, GANCICLOVIR WAS RE-INITIATED ON DAY +63 AFTER BONE MARROW TRANSPLA...
  4. VALGANCICLOVIR [Suspect]
     Active Substance: VALGANCICLOVIR
     Dosage: CMV VIREMIA WAS DETECTED AT 1 MONTH OF AGE, AND TREATED WITH GANCICLOVIR AND CYTOGAM, FOLLOWED BY...
  5. HUMAN CYTOMEGALOVIRUS IMMUNE GLOBULIN [Suspect]
     Active Substance: HUMAN CYTOMEGALOVIRUS IMMUNE GLOBULIN
     Indication: Cytomegalovirus viraemia
     Dosage: STARTING ON DAY +13 AFTER BONE MARROW TRANSPLANT.
  6. HUMAN CYTOMEGALOVIRUS IMMUNE GLOBULIN [Suspect]
     Active Substance: HUMAN CYTOMEGALOVIRUS IMMUNE GLOBULIN
     Indication: Cytomegalovirus viraemia
     Dosage: CMV VIREMIA WAS DETECTED AT 1 MONTH OF AGE, AND TREATED WITH GANCICLOVIR AND CYTOGAM, FOLLOWED BY...
  7. FLUDARABINE [Suspect]
     Active Substance: FLUDARABINE PHOSPHATE
     Dosage: PRE-CONDITIONING FOR BONE MARROW TRANSPLANT AT 3.5 MONTH OF AGE.
  8. FLUDARABINE [Suspect]
     Active Substance: FLUDARABINE PHOSPHATE
     Dosage: PROCEEDED TO A MATERNAL DONOR HAPLOBMT ON DAY +87 AFTER PRECONDITIONING WITH ATG, THIOTEPA, FLUDA...
  9. BUSULFAN [Suspect]
     Active Substance: BUSULFAN
     Dosage: PRE-CONDITIONING FOR BONE MARROW TRANSPLANT AT 3.5 MONTH OF AGE.
  10. ANTI-THYMOCYTE GLOBULIN (RABBIT) NOS [Suspect]
     Active Substance: LAPINE T-LYMPHOCYTE IMMUNE GLOBULIN
     Dosage: PRE-CONDITIONING FOR BONE MARROW TRANSPLANT AT 3.5 MONTH OF AGE.
  11. THIOTEPA [Suspect]
     Active Substance: THIOTEPA
     Dosage: PRE-CONDITIONING FOR BONE MARROW TRANSPLANT AT 3.5 MONTH OF AGE.
  12. THIOTEPA [Suspect]
     Active Substance: THIOTEPA
     Dosage: PROCEEDED TO A MATERNAL DONOR HAPLOBMT ON DAY +87 AFTER PRECONDITIONING WITH ATG, THIOTEPA, FLUDA...
  13. FOSCARNET [Suspect]
     Active Substance: FOSCARNET
     Dosage: STARTING ON DAY +13 AFTER BONE MARROW TRANSPLANT.
  14. FOSCARNET [Suspect]
     Active Substance: FOSCARNET
     Dosage: ON DAY +28 SWITCHED BACK TO FOSCARNET AFTER CMV RESISTANCE.
  15. CIDOFOVIR [Suspect]
     Active Substance: CIDOFOVIR
     Dosage: CIDOFOVIR WAS ADDED TO THE TREATMENT REGIMEN ON DAY +33 AFTER BONE MARROW TRANSPLANT.
  16. INVESTIGATIONAL PRODUCT [Suspect]
     Active Substance: INVESTIGATIONAL PRODUCT
     Dosage: RECEIVED AT 42 DAYS POST BONE MARROW TRANSPLANT.
  17. EQUINE THYMOCYTE IMMUNE GLOBULIN [Suspect]
     Active Substance: EQUINE THYMOCYTE IMMUNE GLOBULIN
     Dosage: THE PATIENT WAS TREATED WITH HATG AND CORTICOSTEROIDS ON DAY +73 POST-BMT.
  18. CYCLOPHOSPHAMIDE [Suspect]
     Active Substance: CYCLOPHOSPHAMIDE
     Dosage: PROCEEDED TO A MATERNAL DONOR HAPLOBMT ON DAY +87 AFTER PRECONDITIONING WITH ATG, THIOTEPA, FLUDA...
  19. THYMOCYTE IMMUNE GLOBULIN NOS [Suspect]
     Active Substance: THYMOCYTE IMMUNE GLOBULIN NOS
     Dosage: PROCEEDED TO A MATERNAL DONOR HAPLOBMT ON DAY +87 AFTER PRECONDITIONING WITH ATG, THIOTEPA, FLUDA...

REACTIONS (15)
  - Cytomegalovirus viraemia [Not Recovered/Not Resolved]
  - Drug ineffective [Not Recovered/Not Resolved]
  - Lung opacity [Unknown]
  - Hepatomegaly [Not Recovered/Not Resolved]
  - Venoocclusive liver disease [Not Recovered/Not Resolved]
  - Respiratory disorder [Not Recovered/Not Resolved]
  - Cytopenia [Not Recovered/Not Resolved]
  - Pancytopenia [Fatal]
  - Transplant rejection [Not Recovered/Not Resolved]
  - Lymphopenia [Not Recovered/Not Resolved]
  - Anaemia [Not Recovered/Not Resolved]
  - Dermatitis exfoliative generalised [Unknown]
  - Hepatitis [Unknown]
  - Off label use [Unknown]
  - Off label use [Unknown]
